FAERS Safety Report 26188542 (Version 1)
Quarter: 2025Q4

REPORT INFORMATION
  Report Type: Spontaneous
  Country: CN (occurrence: CN)
  Receive Date: 20251222
  Receipt Date: 20251222
  Transmission Date: 20260118
  Serious: Yes (Hospitalization)
  Sender: MERCK SHARP & DOHME LLC
  Company Number: CN-009507513-2361191

PATIENT
  Age: 65 Year
  Sex: Female

DRUGS (3)
  1. KEYTRUDA [Suspect]
     Active Substance: PEMBROLIZUMAB
     Indication: Endometrial cancer stage IV
     Route: 041
     Dates: start: 20250807, end: 20250807
  2. CARBOPLATIN [Suspect]
     Active Substance: CARBOPLATIN
     Indication: Endometrial cancer stage IV
     Route: 041
     Dates: start: 20250807, end: 20250807
  3. PACLITAXEL [Suspect]
     Active Substance: PACLITAXEL
     Indication: Endometrial cancer stage IV
     Route: 041
     Dates: start: 20250807, end: 20250807

REACTIONS (11)
  - Drug eruption [Recovering/Resolving]
  - Fibrin D dimer increased [Unknown]
  - Blood immunoglobulin E abnormal [Unknown]
  - Lymphadenopathy [Unknown]
  - Oral mucosa erosion [Unknown]
  - Blood triglycerides abnormal [Unknown]
  - White blood cell count abnormal [Unknown]
  - Superficial vein thrombosis [Unknown]
  - Purpura [Unknown]
  - Erythema [Recovering/Resolving]
  - Pulse abnormal [Unknown]

NARRATIVE: CASE EVENT DATE: 20250801
